FAERS Safety Report 10483137 (Version 1)
Quarter: 2014Q3

REPORT INFORMATION
  Report Type: Spontaneous
  Country: US (occurrence: US)
  Receive Date: 20140930
  Receipt Date: 20140930
  Transmission Date: 20150326
  Serious: Yes (Other)
  Sender: FDA-Public Use
  Company Number: US-ACCORD-026124

PATIENT
  Age: 18 Year
  Sex: Male
  Weight: 72.27 kg

DRUGS (3)
  1. LISINOPRIL ACCORD [Suspect]
     Active Substance: LISINOPRIL
     Indication: HEART DISEASE CONGENITAL
     Dosage: LISINOPRIL TABLETS 10 MG
     Route: 048
     Dates: start: 20140813
  2. ACETYLSALICYLIC ACID [Concomitant]
     Active Substance: ASPIRIN
     Dosage: DOSE UNIT: 325 MG. 3 TABLETS DAILY
     Route: 048
  3. METOPROLOL [Concomitant]
     Active Substance: METOPROLOL

REACTIONS (2)
  - Product substitution issue [Unknown]
  - Arrhythmia [Not Recovered/Not Resolved]

NARRATIVE: CASE EVENT DATE: 20140816
